FAERS Safety Report 6807857-5 (Version None)
Quarter: 2010Q2

REPORT INFORMATION
  Report Type: 
  Country: None (occurrence: None)
  Receive Date: 20100629
  Receipt Date: 20090115
  Transmission Date: 20101027
  Serious: No
  Sender: FDA-Public Use
  Company Number: US-PFIZER INC-2008101119

PATIENT
  Sex: Male
  Weight: 100 kg

DRUGS (7)
  1. TIKOSYN [Suspect]
     Indication: ATRIAL FIBRILLATION
     Dosage: 500 UG, 2X/DAY
     Dates: start: 20081123, end: 20081125
  2. TIKOSYN [Suspect]
     Dates: start: 20081126
  3. WARFARIN SODIUM [Concomitant]
  4. LIPITOR [Concomitant]
  5. CHONDROITIN/GLUCOSAMINE [Concomitant]
  6. MULTI-VITAMINS [Concomitant]
  7. CALCIUM CARBONATE [Concomitant]

REACTIONS (2)
  - ATRIAL FIBRILLATION [None]
  - BLOOD PRESSURE INCREASED [None]
